FAERS Safety Report 5152494-4 (Version None)
Quarter: 2006Q4

REPORT INFORMATION
  Report Type: 
  Country: None (occurrence: None)
  Receive Date: 20061116
  Receipt Date: 20061106
  Transmission Date: 20070319
  Serious: Yes (Death, Other)
  Sender: FDA-Public Use
  Company Number: US-ELI_LILLY_AND_COMPANY-US200611001210

PATIENT

DRUGS (3)
  1. ILETIN [Suspect]
     Route: 064
  2. ILETIN [Suspect]
     Route: 064
  3. ANTIHYPERTENSIVES [Concomitant]
     Route: 064

REACTIONS (5)
  - CAESAREAN SECTION [None]
  - CONVULSION NEONATAL [None]
  - CYANOSIS NEONATAL [None]
  - DRUG EXPOSURE DURING PREGNANCY [None]
  - HYPOGLYCAEMIA NEONATAL [None]
